FAERS Safety Report 9457269 (Version 1)
Quarter: 2013Q3

REPORT INFORMATION
  Report Type: Report from Study
  Country: BR (occurrence: BR)
  Receive Date: 20130814
  Receipt Date: 20130814
  Transmission Date: 20140515
  Serious: Yes (Hospitalization, Other)
  Sender: FDA-Public Use
  Company Number: PHHY2013BR085806

PATIENT
  Age: 7 Year
  Sex: Male

DRUGS (4)
  1. MYCOPHENOLATE [Suspect]
     Indication: IMMUNOSUPPRESSION
     Dosage: UNK UKN, UNK
  2. TACROLIMUS [Suspect]
     Indication: IMMUNOSUPPRESSION
     Dosage: UNK UKN, UNK
  3. PREDNISONE [Suspect]
     Indication: IMMUNOSUPPRESSION
     Dosage: UNK UKN, UNK
  4. THYMOGLOBULIN [Concomitant]
     Dosage: UNK UKN, UNK

REACTIONS (5)
  - Cytomegalovirus infection [Unknown]
  - Adenoidal hypertrophy [Unknown]
  - Obstructive airways disorder [Unknown]
  - Insomnia [Unknown]
  - Post transplant lymphoproliferative disorder [Unknown]
